FAERS Safety Report 6579286-3 (Version None)
Quarter: 2010Q1

REPORT INFORMATION
  Report Type: 
  Country: None (occurrence: None)
  Receive Date: 20100212
  Receipt Date: 20100201
  Transmission Date: 20100710
  Serious: No
  Sender: FDA-Public Use
  Company Number: US-B.I. PHARMACEUTICALS,INC./RIDGEFIELD-2010-BP-01291BP

PATIENT
  Sex: Male

DRUGS (10)
  1. SPIRIVA [Suspect]
     Indication: CHRONIC OBSTRUCTIVE PULMONARY DISEASE
     Dosage: 18 MCG
     Route: 055
     Dates: end: 20100127
  2. SPIRIVA [Suspect]
     Indication: BRONCHITIS CHRONIC
     Dosage: 18 MCG
     Route: 055
     Dates: start: 20100129
  3. COENZYME Q10 [Concomitant]
     Indication: PROPHYLAXIS
  4. ZETIA [Concomitant]
     Indication: BLOOD CHOLESTEROL INCREASED
  5. PRAVASTATIN [Concomitant]
     Indication: BLOOD CHOLESTEROL INCREASED
  6. PROSCAR [Concomitant]
     Indication: PROSTATOMEGALY
  7. QVAR 40 [Concomitant]
     Indication: CHRONIC OBSTRUCTIVE PULMONARY DISEASE
     Route: 055
  8. ASPIRIN [Concomitant]
     Indication: PROPHYLAXIS
  9. FISH OIL [Concomitant]
     Indication: PROPHYLAXIS
  10. LOVAZA [Concomitant]
     Indication: PROPHYLAXIS

REACTIONS (8)
  - CARDIAC MONITORING ABNORMAL [None]
  - CATARACT [None]
  - DIZZINESS [None]
  - EXTRASYSTOLES [None]
  - EYE DISORDER [None]
  - NERVOUSNESS [None]
  - PALPITATIONS [None]
  - PANIC ATTACK [None]
